FAERS Safety Report 17378823 (Version 1)
Quarter: 2020Q1

REPORT INFORMATION
  Report Type: Spontaneous
  Country: US (occurrence: US)
  Receive Date: 20200206
  Receipt Date: 20200206
  Transmission Date: 20200409
  Serious: No
  Sender: FDA-Public Use
  Company Number: US-ABBVIE-19K-163-2677617-00

PATIENT
  Sex: Female
  Weight: 90.8 kg

DRUGS (9)
  1. XELJANZ [Suspect]
     Active Substance: TOFACITINIB CITRATE
     Indication: INFLAMMATION
     Route: 048
     Dates: start: 2017, end: 2017
  2. XELJANZ [Suspect]
     Active Substance: TOFACITINIB CITRATE
     Route: 048
     Dates: start: 2017, end: 2017
  3. METHOTREXATE. [Suspect]
     Active Substance: METHOTREXATE
     Indication: INFLAMMATION
     Route: 065
  4. XELJANZ [Suspect]
     Active Substance: TOFACITINIB CITRATE
     Route: 048
     Dates: start: 2017, end: 201709
  5. ALENDRONATE SODIUM. [Concomitant]
     Active Substance: ALENDRONATE SODIUM
     Indication: OSTEOPOROSIS
     Dates: start: 2015
  6. SIMVASTATIN. [Concomitant]
     Active Substance: SIMVASTATIN
     Indication: BLOOD CHOLESTEROL
  7. HUMIRA [Suspect]
     Active Substance: ADALIMUMAB
     Indication: INFLAMMATION
     Route: 058
  8. XELJANZ [Suspect]
     Active Substance: TOFACITINIB CITRATE
     Route: 048
     Dates: start: 201710
  9. PREDNISONE. [Concomitant]
     Active Substance: PREDNISONE
     Indication: INFLAMMATION

REACTIONS (10)
  - Myalgia [Unknown]
  - Urinary tract infection [Unknown]
  - Dysphagia [Unknown]
  - Nephrolithiasis [Unknown]
  - Upper respiratory tract infection [Recovered/Resolved]
  - Drug ineffective [Unknown]
  - Pain [Unknown]
  - Drug hypersensitivity [Unknown]
  - Urticaria [Unknown]
  - Swollen tongue [Unknown]

NARRATIVE: CASE EVENT DATE: 2017
